FAERS Safety Report 5820417-8 (Version None)
Quarter: 2008Q3

REPORT INFORMATION
  Report Type: 
  Country: None (occurrence: None)
  Receive Date: 20080724
  Receipt Date: 20070816
  Transmission Date: 20090109
  Serious: No
  Sender: FDA-Public Use
  Company Number: A0663709A

PATIENT
  Age: 78 Year
  Sex: Male

DRUGS (11)
  1. AVANDIA [Suspect]
     Dosage: 8MG PER DAY
     Route: 048
     Dates: end: 20070101
  2. ASPIRIN [Concomitant]
  3. BYETTA [Concomitant]
  4. HYDROCHLOROTHIAZIDE [Concomitant]
  5. BACTRIM [Concomitant]
  6. DIGITALINE NATIVELLE [Concomitant]
  7. METFORMIN [Concomitant]
  8. INSULIN [Concomitant]
  9. SIMVASTATIN [Concomitant]
  10. TERAZOSIN HCL [Concomitant]
  11. LANTUS [Concomitant]

REACTIONS (4)
  - ABDOMINAL DISTENSION [None]
  - DISSOCIATION [None]
  - MALAISE [None]
  - WEIGHT INCREASED [None]
